FAERS Safety Report 7353231-5 (Version None)
Quarter: 2011Q1

REPORT INFORMATION
  Report Type: 
  Country: None (occurrence: None)
  Receive Date: 20110315
  Receipt Date: 20110311
  Transmission Date: 20110831
  Serious: Yes (Other)
  Sender: FDA-Public Use
  Company Number: US-PFIZER INC-2011054729

PATIENT
  Sex: Female
  Weight: 124.72 kg

DRUGS (10)
  1. PRISTIQ [Suspect]
     Dosage: 100 MG, 1X/DAY
     Dates: start: 20110301
  2. LUNESTA [Concomitant]
     Indication: SLEEP DISORDER
     Dosage: 3 MG, 1X/DAY
  3. LEVOTHYROXINE [Concomitant]
     Indication: HYPERTHYROIDISM
     Dosage: 100 UG, UNK
  4. TRAZODONE [Concomitant]
     Indication: SLEEP DISORDER
     Dosage: 50 MG, 1X/DAY
  5. DILAUDID [Concomitant]
     Indication: PAIN
     Dosage: 2 MG, AS NEEDED
  6. ENALAPRIL [Concomitant]
     Indication: HYPERTENSION
     Dosage: 20 MG, 1X/DAY
  7. VITAMIN D [Concomitant]
     Dosage: 50000 IU, WEEKLY
  8. ATIVAN [Concomitant]
     Indication: ANXIETY
     Dosage: 1 MG, AS NEEDED
  9. PRISTIQ [Suspect]
     Indication: DEPRESSION
     Dosage: 50 MG, 1X/DAY
     Route: 048
     Dates: start: 20101201
  10. PRISTIQ [Suspect]
     Dosage: SPLITING TABLETS IN HALF
     Dates: start: 20110301

REACTIONS (3)
  - WRONG TECHNIQUE IN DRUG USAGE PROCESS [None]
  - NIGHTMARE [None]
  - CHEST DISCOMFORT [None]
